FAERS Safety Report 22272472 (Version 3)
Quarter: 2023Q2

REPORT INFORMATION
  Report Type: Spontaneous
  Country: CA (occurrence: CA)
  Receive Date: 20230502
  Receipt Date: 20230622
  Transmission Date: 20230721
  Serious: Yes (Other)
  Sender: FDA-Public Use
  Company Number: CA-CELLTRION INC.-2021CA018974

PATIENT

DRUGS (20)
  1. INFLECTRA [Suspect]
     Active Substance: INFLIXIMAB-DYYB
     Indication: Crohn^s disease
     Dosage: 500 MG, INDUCTION AT Q 0, 2, 6 THEN EVERY 8 WEEKS
     Route: 042
     Dates: start: 20211101, end: 20220202
  2. INFLECTRA [Suspect]
     Active Substance: INFLIXIMAB-DYYB
     Dosage: 500 MG, 0, 2, 6 THEN EVERY 8 WEEKS
     Route: 042
     Dates: start: 20211116
  3. INFLECTRA [Suspect]
     Active Substance: INFLIXIMAB-DYYB
     Dosage: 500 MG, 0, 2, 6 THEN EVERY 8 WEEKS
     Route: 042
     Dates: start: 20211214
  4. INFLECTRA [Suspect]
     Active Substance: INFLIXIMAB-DYYB
     Dosage: 500 MG, WAS SUPPOSED TO RECEIVE 1000MG
     Route: 042
     Dates: start: 20220126
  5. INFLECTRA [Suspect]
     Active Substance: INFLIXIMAB-DYYB
     Dosage: 500 MG, 0, 2, 6 THEN EVERY 8 WEEKS
     Route: 042
     Dates: start: 20220202
  6. INFLECTRA [Suspect]
     Active Substance: INFLIXIMAB-DYYB
     Dosage: 1000 MG (10 MG/KG), EVERY 4 WEEKS
     Route: 042
     Dates: start: 20220224, end: 20221229
  7. INFLECTRA [Suspect]
     Active Substance: INFLIXIMAB-DYYB
     Dosage: 1000 MG (10 MG/KG), EVERY 4 WEEKS
     Route: 042
     Dates: start: 20220324
  8. INFLECTRA [Suspect]
     Active Substance: INFLIXIMAB-DYYB
     Dosage: 1000 MG (10 MG/KG), EVERY 4 WEEKS
     Route: 042
     Dates: start: 20220517
  9. INFLECTRA [Suspect]
     Active Substance: INFLIXIMAB-DYYB
     Dosage: 1000 MG (10 MG/KG), EVERY 4 WEEKS
     Route: 042
     Dates: start: 20220623
  10. INFLECTRA [Suspect]
     Active Substance: INFLIXIMAB-DYYB
     Dosage: 1000 MG (10 MG/KG), EVERY 4 WEEKS
     Route: 042
     Dates: start: 20220719
  11. INFLECTRA [Suspect]
     Active Substance: INFLIXIMAB-DYYB
     Dosage: 1000 MG (10 MG/KG), EVERY 4 WEEKS
     Route: 042
     Dates: start: 20220913
  12. INFLECTRA [Suspect]
     Active Substance: INFLIXIMAB-DYYB
     Dosage: 1000 MG (10 MG/KG), EVERY 4 WEEKS
     Route: 042
     Dates: start: 20221027
  13. INFLECTRA [Suspect]
     Active Substance: INFLIXIMAB-DYYB
     Dosage: 1000 MG (10 MG/KG), EVERY 4 WEEKS
     Route: 042
     Dates: start: 20221128
  14. INFLECTRA [Suspect]
     Active Substance: INFLIXIMAB-DYYB
     Dosage: 1000 MG (SUPPOSED TO RECEIVE 1200MG), EVERY 4 WEEKS
     Route: 042
     Dates: start: 20221229, end: 20221229
  15. INFLECTRA [Suspect]
     Active Substance: INFLIXIMAB-DYYB
     Dosage: 1200 MG, EVERY 4 WEEKS
     Route: 042
     Dates: start: 20230203
  16. INFLECTRA [Suspect]
     Active Substance: INFLIXIMAB-DYYB
     Dosage: 1200 MG, EVERY 4 WEEKS
     Route: 042
     Dates: start: 20230315
  17. INFLECTRA [Suspect]
     Active Substance: INFLIXIMAB-DYYB
     Dosage: 1200 MG, EVERY 4 WEEKS
     Route: 042
     Dates: start: 20230421
  18. INFLECTRA [Suspect]
     Active Substance: INFLIXIMAB-DYYB
     Dosage: 1200 MG AFTER 7 WEEKS 4 DAYS (ERY 4 WEEKS)
     Route: 042
     Dates: start: 20230613
  19. INFLECTRA [Suspect]
     Active Substance: INFLIXIMAB-DYYB
     Dosage: 1200 MG AFTER 7 WEEKS 4 DAYS (ERY 4 WEEKS)
     Route: 042
     Dates: start: 20230613
  20. INFLUENZA VIRUS VACCINE [Concomitant]
     Active Substance: INFLUENZA VIRUS VACCINE
     Indication: Immunisation
     Dosage: DOSE NUMBER UNKNOWN, SINGLE
     Dates: start: 20211111, end: 20211111

REACTIONS (15)
  - Drug ineffective [Unknown]
  - Condition aggravated [Recovering/Resolving]
  - Anxiety [Unknown]
  - Malaise [Unknown]
  - Headache [Unknown]
  - Dizziness [Unknown]
  - Nausea [Recovering/Resolving]
  - COVID-19 [Recovered/Resolved]
  - Influenza [Unknown]
  - Off label use [Unknown]
  - Off label use [Unknown]
  - Off label use [Unknown]
  - Intentional product use issue [Unknown]
  - Incorrect dose administered [Unknown]
  - Inappropriate schedule of product administration [Unknown]

NARRATIVE: CASE EVENT DATE: 20210101
